FAERS Safety Report 4894853-0 (Version None)
Quarter: 2006Q1

REPORT INFORMATION
  Report Type: 
  Country: None (occurrence: None)
  Receive Date: 20060127
  Receipt Date: 20060127
  Transmission Date: 20060701
  Serious: No
  Sender: FDA-Public Use
  Company Number: None

PATIENT
  Sex: Female

DRUGS (3)
  1. CEFTAZIDIME [Suspect]
     Indication: COUGH
     Dosage: 2 GRAMS Q 8H IV
     Route: 042
     Dates: start: 20060117, end: 20060123
  2. CEFTAZIDIME [Suspect]
     Indication: CYSTIC FIBROSIS
     Dosage: 2 GRAMS Q 8H IV
     Route: 042
     Dates: start: 20060117, end: 20060123
  3. CEFTAZIDIME [Suspect]
     Indication: PYREXIA
     Dosage: 2 GRAMS Q 8H IV
     Route: 042
     Dates: start: 20060117, end: 20060123

REACTIONS (3)
  - CHEST DISCOMFORT [None]
  - CHILLS [None]
  - PYREXIA [None]
